FAERS Safety Report 21314290 (Version 1)
Quarter: 2022Q3

REPORT INFORMATION
  Report Type: Spontaneous
  Country: CN (occurrence: CN)
  Receive Date: 20220909
  Receipt Date: 20220909
  Transmission Date: 20221026
  Serious: Yes (Other)
  Sender: FDA-Public Use
  Company Number: CN-BAYER-2021A236311

PATIENT
  Age: 33 Year
  Sex: Female

DRUGS (1)
  1. YASMIN [Suspect]
     Active Substance: DROSPIRENONE\ETHINYL ESTRADIOL
     Indication: Menstrual cycle management
     Dosage: 1 DF, QD
     Route: 048
     Dates: start: 20210908, end: 20210913

REACTIONS (5)
  - Haemorrhage in pregnancy [None]
  - Maternal exposure during pregnancy [None]
  - Product use in unapproved indication [None]
  - Product monitoring error [None]
  - Contraindicated product administered [None]

NARRATIVE: CASE EVENT DATE: 20210908
